FAERS Safety Report 20007962 (Version 1)
Quarter: 2021Q4

REPORT INFORMATION
  Report Type: Report from Study
  Country: US (occurrence: US)
  Receive Date: 20211028
  Receipt Date: 20211028
  Transmission Date: 20220303
  Serious: Yes (Hospitalization, Other)
  Sender: FDA-Public Use
  Company Number: US-GILEAD-2021-0553522

PATIENT
  Age: 18 Year
  Sex: Male

DRUGS (1)
  1. AZTREONAM LYSINE [Suspect]
     Active Substance: AZTREONAM LYSINE
     Indication: Cystic fibrosis
     Dosage: 1 MG, TID, EVERY OTHER MONTH
     Route: 055
     Dates: start: 20210413

REACTIONS (2)
  - Spinal operation [Unknown]
  - Road traffic accident [Unknown]

NARRATIVE: CASE EVENT DATE: 20210828
